FAERS Safety Report 5670941-6 (Version None)
Quarter: 2008Q2

REPORT INFORMATION
  Report Type: 
  Country: None (occurrence: None)
  Receive Date: 20080305
  Receipt Date: 20071120
  Transmission Date: 20081010
  Serious: Yes (Other)
  Sender: FDA-Public Use
  Company Number: BDI-010615

PATIENT
  Age: 76 Year
  Sex: Female

DRUGS (8)
  1. ISOVUE-370 [Suspect]
     Indication: COMPUTERISED TOMOGRAM
     Dosage: 100ML ONCE INTRAVENOUS
     Route: 042
     Dates: start: 20071101, end: 20071101
  2. GABAPENTIN [Concomitant]
  3. ATIVAN [Concomitant]
  4. AMBIEN [Concomitant]
  5. PROCARDIA [Concomitant]
  6. NEXIUM [Concomitant]
  7. LASIX [Concomitant]
  8. LOPID [Concomitant]

REACTIONS (1)
  - ANAPHYLACTIC SHOCK [None]
